FAERS Safety Report 4867096-4 (Version None)
Quarter: 2005Q4

REPORT INFORMATION
  Report Type: 
  Country: None (occurrence: None)
  Receive Date: 20051220
  Receipt Date: 20051208
  Transmission Date: 20060501
  Serious: Yes (Hospitalization)
  Sender: FDA-Public Use
  Company Number: HQWYE792101DEC05

PATIENT
  Sex: Male

DRUGS (4)
  1. EFFEXOR XR [Suspect]
     Dosage: 150 MG 1X PER 1 DAY, TRANSPLACENTAL
     Route: 064
     Dates: start: 20040101
  2. RITALIN [Suspect]
     Dosage: TRANSPLACENTAL
     Route: 064
  3. WELLBUTRIN [Concomitant]
  4. GEODON [Concomitant]

REACTIONS (7)
  - AGITATION NEONATAL [None]
  - DRUG EXPOSURE DURING PREGNANCY [None]
  - DRUG WITHDRAWAL SYNDROME NEONATAL [None]
  - FEEDING DISORDER NEONATAL [None]
  - IRRITABILITY [None]
  - NEONATAL DISORDER [None]
  - PREMATURE BABY [None]
